FAERS Safety Report 9340525 (Version 2)
Quarter: 2013Q3

REPORT INFORMATION
  Report Type: Report from Study
  Country: US (occurrence: US)
  Receive Date: 20130610
  Receipt Date: 20130724
  Transmission Date: 20140515
  Serious: Yes (Other)
  Sender: FDA-Public Use
  Company Number: US-ELI_LILLY_AND_COMPANY-US201206001621

PATIENT
  Sex: Female

DRUGS (3)
  1. TERIPARATIDE [Suspect]
     Indication: SENILE OSTEOPOROSIS
     Dosage: 20 UG, QD
     Route: 058
     Dates: end: 20120423
  2. TERIPARATIDE [Suspect]
     Dosage: 20 UG, QD
     Route: 058
  3. TERIPARATIDE [Suspect]
     Dosage: 20 UG, QD
     Route: 058

REACTIONS (8)
  - Neoplasm malignant [Unknown]
  - Pain in extremity [Unknown]
  - Intentional drug misuse [Not Recovered/Not Resolved]
  - Generalised erythema [Unknown]
  - Haematoma [Unknown]
  - Muscle spasms [Unknown]
  - Osteomyelitis [Unknown]
  - Malaise [Unknown]
